FAERS Safety Report 10470977 (Version 2)
Quarter: 2014Q4

REPORT INFORMATION
  Report Type: Report from Study
  Country: MX (occurrence: MX)
  Receive Date: 20140923
  Receipt Date: 20141011
  Transmission Date: 20150528
  Serious: Yes (Other)
  Sender: FDA-Public Use
  Company Number: PHHY2014MX123884

PATIENT
  Age: 79 Year
  Sex: Female

DRUGS (1)
  1. EXFORGE HCT [Suspect]
     Active Substance: AMLODIPINE BESYLATE\HYDROCHLOROTHIAZIDE\VALSARTAN
     Indication: HYPERTENSION
     Dosage: 1 DF (320/10/25 MG), QD (IN THE MORNING)
     Route: 048

REACTIONS (7)
  - Arthropathy [Recovering/Resolving]
  - Malaise [Not Recovered/Not Resolved]
  - Cataract [Not Recovered/Not Resolved]
  - Hearing impaired [Not Recovered/Not Resolved]
  - Visual impairment [Not Recovered/Not Resolved]
  - Blindness [Not Recovered/Not Resolved]
  - Myocardial infarction [Not Recovered/Not Resolved]

NARRATIVE: CASE EVENT DATE: 201311
